FAERS Safety Report 4986626-5 (Version None)
Quarter: 2006Q2

REPORT INFORMATION
  Report Type: 
  Country: None (occurrence: None)
  Receive Date: 20060428
  Receipt Date: 20060224
  Transmission Date: 20061013
  Serious: Yes (Other)
  Sender: FDA-Public Use
  Company Number: PHNR2006AU00558

PATIENT
  Sex: Female

DRUGS (2)
  1. TAXOL [Concomitant]
  2. ZOMETA [Suspect]
     Indication: BREAST CANCER METASTATIC
     Dosage: 4 MG, UNK

REACTIONS (3)
  - BONE DISORDER [None]
  - IMPAIRED HEALING [None]
  - OSTEONECROSIS [None]
